FAERS Safety Report 7637186-1 (Version None)
Quarter: 2011Q3

REPORT INFORMATION
  Report Type: 
  Country: None (occurrence: None)
  Receive Date: 20110726
  Receipt Date: 20110712
  Transmission Date: 20111222
  Serious: Yes (Hospitalization)
  Sender: FDA-Public Use
  Company Number: PHHY2011KR62689

PATIENT

DRUGS (8)
  1. GABAPENTIN [Concomitant]
     Dosage: 600 MG, UNK
  2. OXYCONTIN [Concomitant]
     Dosage: 20 MG, UNK
  3. LANSOPRAZOLE [Concomitant]
     Dosage: 30 MG, UNK
  4. MAGNESIUM OXIDE [Concomitant]
     Dosage: 250 MG, UNK
  5. MYPOL [Concomitant]
     Dosage: UNK UKN, UNK
  6. ZOLPIDEM [Concomitant]
     Dosage: 12.5 MG, UNK
  7. TEGRETOL [Suspect]
     Dosage: 200 MG, UNK
  8. STILLEN [Concomitant]
     Dosage: 60 MG, UNK

REACTIONS (3)
  - HERPES ZOSTER [None]
  - PAIN [None]
  - RASH [None]
